FAERS Safety Report 16628175 (Version 1)
Quarter: 2019Q3

REPORT INFORMATION
  Report Type: Spontaneous
  Country: US (occurrence: US)
  Receive Date: 20190724
  Receipt Date: 20190724
  Transmission Date: 20191004
  Serious: No
  Sender: FDA-Public Use
  Company Number: PHHY2019US172481

PATIENT
  Age: 3 Year
  Sex: Male

DRUGS (1)
  1. VOLTAREN [Suspect]
     Active Substance: DICLOFENAC SODIUM
     Indication: JOINT SWELLING
     Dosage: UNK, APPLY A LITTLE BIT OF IT
     Route: 065

REACTIONS (2)
  - Product use issue [Unknown]
  - Product use in unapproved indication [Unknown]
